FAERS Safety Report 6819627-2 (Version None)
Quarter: 2010Q3

REPORT INFORMATION
  Report Type: 
  Country: None (occurrence: None)
  Receive Date: 20100701
  Receipt Date: 20100317
  Transmission Date: 20110219
  Serious: No
  Sender: FDA-Public Use
  Company Number: US-TEVA-228630USA

PATIENT
  Age: 79 Year
  Sex: Female

DRUGS (1)
  1. AZILECT [Suspect]
     Indication: PARKINSON'S DISEASE
     Dosage: QD
     Route: 048
     Dates: start: 20100301, end: 20100306

REACTIONS (1)
  - RASH [None]
